FAERS Safety Report 25076787 (Version 2)
Quarter: 2025Q2

REPORT INFORMATION
  Report Type: Spontaneous
  Country: US (occurrence: US)
  Receive Date: 20250313
  Receipt Date: 20250507
  Transmission Date: 20250717
  Serious: No
  Sender: ABBVIE
  Company Number: US-ABBVIE-6177689

PATIENT
  Sex: Female
  Weight: 82 kg

DRUGS (2)
  1. LATISSE [Suspect]
     Active Substance: BIMATOPROST
     Indication: Madarosis
     Dosage: FORM STRENGTH: 0.3MG/ML, START DATE TEXT: ABOUT 1.5 YEARS AGO
     Route: 047
  2. LATISSE [Suspect]
     Active Substance: BIMATOPROST
     Indication: Madarosis
     Dosage: FORM STRENGTH: 0.3MG/ML, STOP DATE TEXT: FOR 6 MONTHS ONLY
     Route: 047
     Dates: start: 2023

REACTIONS (2)
  - Off label use [Recovering/Resolving]
  - Hair growth abnormal [Recovering/Resolving]
